FAERS Safety Report 8015717-X (Version None)
Quarter: 2011Q4

REPORT INFORMATION
  Report Type: 
  Country: None (occurrence: None)
  Receive Date: 20111230
  Receipt Date: 20111227
  Transmission Date: 20120403
  Serious: Yes (Death, Hospitalization, Other)
  Sender: FDA-Public Use
  Company Number: PHHY2011FR112891

PATIENT
  Sex: Male

DRUGS (5)
  1. EXELON [Suspect]
     Indication: DEMENTIA
     Dosage: 9.5 MG, PER 24 H QD
     Route: 062
  2. AMLODIPINE BESYLATE [Suspect]
     Indication: HYPERTENSION
     Dosage: 5 MG, QD
     Route: 048
  3. DIAMICRON [Suspect]
     Indication: TYPE 2 DIABETES MELLITUS
     Dosage: 30 MG, PER DAY
     Route: 048
  4. MODOPAR [Suspect]
     Dosage: 1625 MG, PER DAY
     Dates: start: 20110901
  5. MODOPAR [Suspect]
     Indication: PARKINSON'S DISEASE
     Dosage: UNK

REACTIONS (17)
  - SINUS BRADYCARDIA [None]
  - ATRIOVENTRICULAR BLOCK [None]
  - GENERAL PHYSICAL HEALTH DETERIORATION [None]
  - PERIPHERAL COLDNESS [None]
  - HYPERKALAEMIA [None]
  - C-REACTIVE PROTEIN INCREASED [None]
  - ATRIOVENTRICULAR BLOCK FIRST DEGREE [None]
  - HAEMODYNAMIC INSTABILITY [None]
  - NEUROLOGICAL DECOMPENSATION [None]
  - COMA SCALE ABNORMAL [None]
  - TOXICITY TO VARIOUS AGENTS [None]
  - DYSPHAGIA [None]
  - MOTOR DYSFUNCTION [None]
  - HALLUCINATION [None]
  - HYPOTHERMIA [None]
  - HYPOTENSION [None]
  - DEMENTIA [None]
